FAERS Safety Report 15231959 (Version 4)
Quarter: 2019Q1

REPORT INFORMATION
  Report Type: Spontaneous
  Country: US (occurrence: US)
  Receive Date: 20180802
  Receipt Date: 20190118
  Transmission Date: 20190417
  Serious: Yes (Hospitalization, Other)
  Sender: FDA-Public Use
  Company Number: US-SA-2018SA207577

PATIENT
  Age: 83 Year
  Sex: Female

DRUGS (1)
  1. DUPIXENT [Suspect]
     Active Substance: DUPILUMAB
     Indication: DERMATITIS ATOPIC
     Dosage: 300 MG, QOW
     Route: 058
     Dates: start: 20180411

REACTIONS (9)
  - Transient ischaemic attack [Unknown]
  - Therapeutic response decreased [Unknown]
  - Pneumonia [Recovering/Resolving]
  - Dehydration [Recovering/Resolving]
  - Urinary tract infection [Recovering/Resolving]
  - Dry eye [Recovering/Resolving]
  - Confusional state [Unknown]
  - Cardiac failure congestive [Recovering/Resolving]
  - Incoherent [Unknown]

NARRATIVE: CASE EVENT DATE: 2018
